FAERS Safety Report 5026012-5 (Version None)
Quarter: 2006Q2

REPORT INFORMATION
  Report Type: 
  Country: None (occurrence: None)
  Receive Date: 20060614
  Receipt Date: 20050928
  Transmission Date: 20061013
  Serious: Yes (Hospitalization, Disabling)
  Sender: FDA-Public Use
  Company Number: US-ROCHE-419578

PATIENT
  Age: 22 Year
  Sex: Male
  Weight: 62.1 kg

DRUGS (12)
  1. ACCUTANE [Suspect]
     Indication: ACNE
     Route: 048
     Dates: start: 19840715, end: 19841215
  2. MINOCIN [Concomitant]
     Indication: ACNE
     Dosage: ON 15 NOVEMBER 1989 (EST), THE PATIENT WAS TAKING MINOCIN 50MG BID OR TID WHEN ACNE FLARES OCCURRED.
  3. ACHROMYCIN [Concomitant]
     Indication: ACNE
  4. BENZAGEL [Concomitant]
     Indication: ACNE
     Dosage: DRUG REPORTED AS BENZAGEL-5.
  5. TRIAMCINOLONE [Concomitant]
     Indication: ACNE
  6. 1 CONCOMITANT DRUG [Concomitant]
     Indication: ACNE
     Dosage: DRUG REPORTED AS PENXOYL-10.
  7. SUMYCIN [Concomitant]
  8. DAPSONE [Concomitant]
     Indication: ACNE
  9. ERYTHROMYCIN [Concomitant]
     Indication: ACNE
     Route: 061
  10. SULFUR [Concomitant]
     Indication: ACNE
     Dosage: DRUG REPORTED AS SULFUR BAR.
  11. CLEOCIN HYDROCHLORIDE [Concomitant]
     Indication: ACNE
  12. TOPICYCLINE [Concomitant]
     Indication: ACNE

REACTIONS (70)
  - ABDOMINAL PAIN [None]
  - ABDOMINAL PAIN LOWER [None]
  - ABDOMINAL PAIN UPPER [None]
  - ABDOMINAL WALL ABSCESS [None]
  - ABDOMINAL WALL INFECTION [None]
  - ABDOMINAL WALL MASS [None]
  - ABSCESS [None]
  - ACCIDENT AT WORK [None]
  - ANAEMIA [None]
  - BACK INJURY [None]
  - BASAL CELL CARCINOMA [None]
  - CHRONIC FATIGUE SYNDROME [None]
  - COLITIS ULCERATIVE [None]
  - COUGH [None]
  - CROHN'S DISEASE [None]
  - CYST [None]
  - DECREASED APPETITE [None]
  - DEHYDRATION [None]
  - DEPRESSION [None]
  - DIARRHOEA [None]
  - DUODENAL ULCER [None]
  - DUODENITIS [None]
  - DYSPEPSIA [None]
  - ECZEMA [None]
  - ENTEROCOLONIC FISTULA [None]
  - EOSINOPHILIA [None]
  - EPISTAXIS [None]
  - EROSIVE DUODENITIS [None]
  - GASTRIC DILATATION [None]
  - GASTRIC DISORDER [None]
  - GASTRIC ULCER [None]
  - GASTROINTESTINAL DISORDER [None]
  - GASTROINTESTINAL NECROSIS [None]
  - HEADACHE [None]
  - IMPAIRED GASTRIC EMPTYING [None]
  - INFLAMMATORY BOWEL DISEASE [None]
  - INFLUENZA [None]
  - INTESTINAL HAEMORRHAGE [None]
  - INTESTINAL OBSTRUCTION [None]
  - IRON DEFICIENCY ANAEMIA [None]
  - IRRITABLE BOWEL SYNDROME [None]
  - LIGAMENT DISORDER [None]
  - LIGAMENT SPRAIN [None]
  - LUNG HYPERINFLATION [None]
  - LYMPHOID TISSUE HYPERPLASIA [None]
  - MELANOCYTIC NAEVUS [None]
  - MUSCLE SPASMS [None]
  - NAUSEA [None]
  - OBSTRUCTION GASTRIC [None]
  - PANCREATIC ENLARGEMENT [None]
  - PANCREATIC NEOPLASM [None]
  - PANCREATITIS [None]
  - PANCREATITIS CHRONIC [None]
  - PELVIC ABSCESS [None]
  - PEPTIC ULCER [None]
  - PHARYNGOLARYNGEAL PAIN [None]
  - PLEURITIC PAIN [None]
  - POST PROCEDURAL COMPLICATION [None]
  - PURULENCE [None]
  - PYREXIA [None]
  - SEROSITIS [None]
  - SKIN DISORDER [None]
  - SUNBURN [None]
  - TRANSFUSION REACTION [None]
  - UPPER GASTROINTESTINAL HAEMORRHAGE [None]
  - URTICARIA [None]
  - VITAMIN B12 DEFICIENCY [None]
  - VOMITING [None]
  - WEIGHT DECREASED [None]
  - WHITE BLOOD CELL COUNT INCREASED [None]
